FAERS Safety Report 13591754 (Version 1)
Quarter: 2017Q2

REPORT INFORMATION
  Report Type: Spontaneous
  Country: FR (occurrence: FR)
  Receive Date: 20170530
  Receipt Date: 20170530
  Transmission Date: 20170830
  Serious: Yes (Hospitalization)
  Sender: FDA-Public Use
  Company Number: FR-PFIZER INC-2017230361

PATIENT
  Age: 59 Year
  Sex: Male

DRUGS (3)
  1. VINORELBINE TARTRATE. [Suspect]
     Active Substance: VINORELBINE TARTRATE
     Indication: SQUAMOUS CELL CARCINOMA OF LUNG
     Dosage: 50 MG, CYCLIC (ON DAY 1 AND DAY 15 OF 15 DAY CYCLE)
  2. AMETYCINE [Concomitant]
     Active Substance: MITOMYCIN
     Indication: SQUAMOUS CELL CARCINOMA OF LUNG
     Dosage: UNK UNK, CYCLIC (ON DAY 1 OF 15 DAY CYCLE)
  3. CISPLATIN. [Concomitant]
     Active Substance: CISPLATIN
     Indication: SQUAMOUS CELL CARCINOMA OF LUNG
     Dosage: UNK UNK, CYCLIC (ON DAY 1 OF 15 DAY CYCLE)

REACTIONS (1)
  - Acute pulmonary oedema [Recovering/Resolving]
